FAERS Safety Report 4613921-1 (Version None)
Quarter: 2005Q1

REPORT INFORMATION
  Report Type: 
  Country: None (occurrence: None)
  Receive Date: 20050316
  Receipt Date: 20050309
  Transmission Date: 20050727
  Serious: Yes (Hospitalization)
  Sender: FDA-Public Use
  Company Number: SEWYE436918FEB05

PATIENT
  Age: 53 Year
  Sex: Female

DRUGS (3)
  1. CYCLOSPORINE [Suspect]
     Indication: RENAL TRANSPLANT
     Dosage: 250 MG 2X PER 1 DAY, ORAL
     Route: 048
     Dates: start: 20041229
  2. AMOTEIN (METRONIDAZOLE) [Concomitant]
  3. CEFOTAXIME SODIUM [Concomitant]

REACTIONS (2)
  - BACK PAIN [None]
  - DIVERTICULITIS [None]
